FAERS Safety Report 8518473-1 (Version None)
Quarter: 2012Q3

REPORT INFORMATION
  Report Type: 
  Country: None (occurrence: None)
  Receive Date: 20120718
  Receipt Date: 20120411
  Transmission Date: 20120928
  Serious: Yes (Other)
  Sender: FDA-Public Use
  Company Number: US-BRISTOL-MYERS SQUIBB COMPANY-16484735

PATIENT
  Sex: Male

DRUGS (2)
  1. ENOXAPARIN [Suspect]
  2. COUMADIN [Suspect]

REACTIONS (3)
  - CONTUSION [None]
  - INCISION SITE HAEMORRHAGE [None]
  - INTERNATIONAL NORMALISED RATIO INCREASED [None]
